FAERS Safety Report 5924195-3 (Version None)
Quarter: 2008Q4

REPORT INFORMATION
  Report Type: 
  Country: None (occurrence: None)
  Receive Date: 20081020
  Receipt Date: 20081008
  Transmission Date: 20090506
  Serious: No
  Sender: FDA-Public Use
  Company Number: US-ELI_LILLY_AND_COMPANY-US200809006023

PATIENT
  Age: 82 Year
  Sex: Female
  Weight: 63.492 kg

DRUGS (1)
  1. FORTEO [Suspect]
     Indication: OSTEOPOROSIS
     Dosage: 20 UG, DAILY (1/D)
     Dates: start: 20061001

REACTIONS (2)
  - BONE DENSITY DECREASED [None]
  - GLOMERULAR FILTRATION RATE DECREASED [None]
